FAERS Safety Report 8357829-7 (Version None)
Quarter: 2012Q2

REPORT INFORMATION
  Report Type: 
  Country: None (occurrence: None)
  Receive Date: 20120514
  Receipt Date: 20120507
  Transmission Date: 20120825
  Serious: Yes (Hospitalization)
  Sender: FDA-Public Use
  Company Number: US-VERTEX PHARMACEUTICALS INC.-AE-2012-003738

PATIENT
  Sex: Male

DRUGS (5)
  1. RIBAVIRIN [Concomitant]
     Indication: HEPATITIS C
     Route: 048
     Dates: start: 20090101
  2. RIBAVIRIN [Concomitant]
  3. PEGASYS [Concomitant]
  4. INCIVEK [Suspect]
     Indication: HEPATITIS C
     Route: 048
     Dates: start: 20120118, end: 20120410
  5. PEGASYS [Concomitant]
     Indication: HEPATITIS C
     Route: 058
     Dates: start: 20090101

REACTIONS (6)
  - ANAEMIA [None]
  - LIVER TRANSPLANT REJECTION [None]
  - OEDEMA [None]
  - OFF LABEL USE [None]
  - RASH [None]
  - ANORECTAL DISCOMFORT [None]
